FAERS Safety Report 7745616-X (Version None)
Quarter: 2011Q3

REPORT INFORMATION
  Report Type: 
  Country: None (occurrence: None)
  Receive Date: 20110913
  Receipt Date: 20110830
  Transmission Date: 20111222
  Serious: Yes (Hospitalization, Other)
  Sender: FDA-Public Use
  Company Number: US-ELI_LILLY_AND_COMPANY-US201109000297

PATIENT
  Sex: Female

DRUGS (12)
  1. PREMARIN [Concomitant]
  2. ZOCOR [Concomitant]
  3. VITAMIN TAB [Concomitant]
  4. SYNTHROID [Concomitant]
  5. BENICAR [Concomitant]
  6. SYMBICORT [Concomitant]
  7. PAXIL [Concomitant]
  8. RANITIDINE HCL [Concomitant]
  9. DEXALONE                           /00048102/ [Concomitant]
  10. PREVERAL [Concomitant]
  11. FORTEO [Suspect]
     Indication: OSTEOPOROSIS
     Dosage: 20 UG, QD
     Route: 065
     Dates: start: 20090101
  12. BUPROPION HCL [Concomitant]

REACTIONS (5)
  - VOMITING [None]
  - LIPASE INCREASED [None]
  - NAUSEA [None]
  - MEDICATION ERROR [None]
  - PANCREATITIS [None]
